FAERS Safety Report 17891370 (Version 1)
Quarter: 2020Q2

REPORT INFORMATION
  Report Type: Spontaneous
  Country: US (occurrence: US)
  Receive Date: 20200612
  Receipt Date: 20200612
  Transmission Date: 20200714
  Serious: Yes (Other)
  Sender: FDA-Public Use
  Company Number: NVSC2020US164242

PATIENT
  Age: 82 Year
  Sex: Male

DRUGS (8)
  1. LINEZOLID. [Suspect]
     Active Substance: LINEZOLID
     Indication: OSTEOMYELITIS
     Dosage: UNK
     Route: 065
  2. AMIKACIN. [Suspect]
     Active Substance: AMIKACIN
     Indication: OSTEOMYELITIS
     Dosage: UNK
     Route: 065
  3. AMIKACIN. [Suspect]
     Active Substance: AMIKACIN
     Dosage: UNK (POSTOPERATIVELY)
     Route: 065
  4. MEROPENEM. [Suspect]
     Active Substance: MEROPENEM
     Indication: OSTEOMYELITIS
     Dosage: UNK
     Route: 065
  5. MEROPENEM. [Suspect]
     Active Substance: MEROPENEM
     Dosage: UNK (POSTOPERATIVELY)
     Route: 065
  6. AZITHROMYCIN ANHYDROUS. [Suspect]
     Active Substance: AZITHROMYCIN ANHYDROUS
     Indication: OSTEOMYELITIS
     Dosage: UNK(POSTOPERATIVE)
     Route: 065
  7. TIGECYCLINE. [Suspect]
     Active Substance: TIGECYCLINE
     Indication: OSTEOMYELITIS
     Dosage: UNK
     Route: 065
  8. TIGECYCLINE. [Suspect]
     Active Substance: TIGECYCLINE
     Dosage: UNK (POSTOPERATIVELY)
     Route: 065

REACTIONS (4)
  - Product use in unapproved indication [Unknown]
  - Barrett^s oesophagus [Unknown]
  - Clostridium difficile colitis [Unknown]
  - Nausea [Unknown]
